FAERS Safety Report 6177128-1 (Version None)
Quarter: 2009Q2

REPORT INFORMATION
  Report Type: 
  Country: None (occurrence: None)
  Receive Date: 20090430
  Receipt Date: 20090430
  Transmission Date: 20091009
  Serious: Yes (Other)
  Sender: FDA-Public Use
  Company Number: None

PATIENT
  Age: 40 Year
  Sex: Female
  Weight: 102.0593 kg

DRUGS (1)
  1. LEVAQUIN [Suspect]
     Indication: UPPER RESPIRATORY TRACT INFECTION
     Dosage: 1 ONE TIME PER DAY PO
     Route: 048
     Dates: start: 20090318, end: 20090406

REACTIONS (8)
  - ANXIETY [None]
  - CHEST PAIN [None]
  - DEPRESSION [None]
  - HYPERTENSION [None]
  - INSOMNIA [None]
  - PAIN IN EXTREMITY [None]
  - PALPITATIONS [None]
  - TREMOR [None]
